FAERS Safety Report 23384851 (Version 1)
Quarter: 2024Q1

REPORT INFORMATION
  Report Type: Spontaneous
  Country: US (occurrence: US)
  Receive Date: 20240109
  Receipt Date: 20240109
  Transmission Date: 20240410
  Serious: No
  Sender: FDA-Public Use
  Company Number: US-INCYTE CORPORATION-2023IN013376

PATIENT

DRUGS (1)
  1. OPZELURA [Suspect]
     Active Substance: RUXOLITINIB PHOSPHATE
     Indication: Eczema
     Dosage: USING THE PRODUCT TWO TO THREE TIMES A DAY
     Route: 065

REACTIONS (3)
  - Product physical issue [Unknown]
  - Application site irritation [Unknown]
  - Off label use [Unknown]
